FAERS Safety Report 5968809-0 (Version None)
Quarter: 2008Q4

REPORT INFORMATION
  Report Type: 
  Country: None (occurrence: None)
  Receive Date: 20081125
  Receipt Date: 20081125
  Transmission Date: 20090506
  Serious: No
  Sender: FDA-Public Use
  Company Number: None

PATIENT
  Sex: Male

DRUGS (9)
  1. NALTREXONE 50MG -1/2 TAB- BARR [Suspect]
     Indication: ALCOHOLISM
     Dosage: 25 MG QAM PO
     Route: 048
     Dates: start: 20081122, end: 20081122
  2. GABAPENTIN [Concomitant]
  3. HYDROXYZINE [Concomitant]
  4. RELAFEN [Concomitant]
  5. ZOLOFT [Concomitant]
  6. BACTRIUM [Concomitant]
  7. DS [Concomitant]
  8. ULTRAM [Concomitant]
  9. VENTOLIN [Concomitant]

REACTIONS (2)
  - FLUSHING [None]
  - HYPERHIDROSIS [None]
